FAERS Safety Report 5572627-5 (Version None)
Quarter: 2007Q4

REPORT INFORMATION
  Report Type: 
  Country: None (occurrence: None)
  Receive Date: 20071130
  Receipt Date: 20070207
  Transmission Date: 20080405
  Serious: Yes (Disabling)
  Sender: FDA-Public Use
  Company Number: WAES 0601USA02837

PATIENT
  Age: 57 Year
  Sex: Male

DRUGS (10)
  1. FOSAMAX [Suspect]
     Indication: OSTEOPOROSIS
     Dosage: 70 MG WKY PO
     Route: 048
     Dates: start: 19950101, end: 20050920
  2. FOSAMAX [Concomitant]
     Indication: OSTEOPOROSIS
     Dosage: 10 MG PO
     Route: 048
  3. ADVAIR DISKUS 100/50 [Concomitant]
  4. ARAVA [Concomitant]
  5. CLARITIN-D [Concomitant]
  6. LIPITOR [Concomitant]
  7. MEDROL [Concomitant]
  8. PROVENTIL [Concomitant]
  9. SINGULAIR [Concomitant]
  10. VITAMIN D [Concomitant]

REACTIONS (5)
  - ANXIETY [None]
  - DEPRESSION [None]
  - OSTEONECROSIS [None]
  - OSTEOPENIA [None]
  - SKIN CANCER [None]
